FAERS Safety Report 14204690 (Version 2)
Quarter: 2018Q1

REPORT INFORMATION
  Report Type: Spontaneous
  Country: JP (occurrence: JP)
  Receive Date: 20171120
  Receipt Date: 20180129
  Transmission Date: 20180508
  Serious: Yes (Hospitalization, Other)
  Sender: FDA-Public Use
  Company Number: JP-GLAXOSMITHKLINE-JP2017JPN174840

PATIENT
  Age: 82 Year
  Sex: Female
  Weight: 31 kg

DRUGS (9)
  1. AMLODIPINE [Concomitant]
     Active Substance: AMLODIPINE BESYLATE
     Dosage: UNK
  2. BUFFERIN [Concomitant]
     Active Substance: ASPIRIN
     Dosage: 81 MG, 1D
  3. ALFACALCIDOL CAPSULE [Concomitant]
     Dosage: 0.25 ?G, 1D
  4. FAMOTIDINE. [Concomitant]
     Active Substance: FAMOTIDINE
     Dosage: UNK
  5. ALLOPURINOL TABLET [Concomitant]
     Active Substance: ALLOPURINOL
     Dosage: 100 MG, 1D
  6. THYRADIN S [Concomitant]
     Active Substance: LEVOTHYROXINE SODIUM
     Dosage: 50 ?G, 1D
  7. FUROSEMIDE. [Concomitant]
     Active Substance: FUROSEMIDE
     Dosage: 20 MG, 1D
  8. VALTREX [Suspect]
     Active Substance: VALACYCLOVIR HYDROCHLORIDE
     Indication: HERPES ZOSTER
     Dosage: 1000 MG, TID
     Route: 048
     Dates: start: 20171110, end: 20171114
  9. E KEPPRA DRY SYRUP [Concomitant]
     Dosage: UNK

REACTIONS (3)
  - Altered state of consciousness [Recovered/Resolved]
  - Prescribed overdose [Unknown]
  - Toxic encephalopathy [Recovered/Resolved]

NARRATIVE: CASE EVENT DATE: 201711
